FAERS Safety Report 4617933-3 (Version None)
Quarter: 2005Q1

REPORT INFORMATION
  Report Type: 
  Country: None (occurrence: None)
  Receive Date: 20050322
  Receipt Date: 20050316
  Transmission Date: 20050727
  Serious: Yes (Life-Threatening, Hospitalization)
  Sender: FDA-Public Use
  Company Number: ST-2005-008281

PATIENT
  Age: 65 Year
  Sex: Male
  Weight: 82 kg

DRUGS (6)
  1. OLMETEC [Suspect]
     Indication: HYPERTENSION
     Dosage: 20 MG QD PO
     Route: 048
     Dates: start: 20050118, end: 20050205
  2. ADALAT [Concomitant]
  3. ALLOPURINOL [Concomitant]
  4. ZYLORIC   GLAXO WELLCOME [Concomitant]
  5. LASIX [Concomitant]
  6. TORSEMIDE [Concomitant]

REACTIONS (2)
  - LIVER DISORDER [None]
  - LIVER FUNCTION TEST ABNORMAL [None]
